FAERS Safety Report 8361367-5 (Version None)
Quarter: 2012Q2

REPORT INFORMATION
  Report Type: 
  Country: None (occurrence: None)
  Receive Date: 20120514
  Receipt Date: 20120504
  Transmission Date: 20120825
  Serious: Yes (Hospitalization, Other)
  Sender: FDA-Public Use
  Company Number: 2011SP054941

PATIENT
  Age: 50 Year
  Sex: Female

DRUGS (5)
  1. PEG-INTRON [Suspect]
     Indication: HEPATITIS C
     Dates: start: 20090101, end: 20090301
  2. PEG-INTRON [Suspect]
     Indication: HEPATITIS C
     Dates: start: 20111114, end: 20120503
  3. VICTRELIS [Suspect]
     Indication: HEPATITIS C
     Dates: start: 20111212, end: 20120503
  4. RIBAVIRIN [Suspect]
     Indication: HEPATITIS C
     Dosage: 1 DF;QD;
     Dates: start: 20090101, end: 20090301
  5. RIBAVIRIN [Suspect]
     Indication: HEPATITIS C
     Dosage: 1 DF;QD;
     Dates: start: 20111114, end: 20120503

REACTIONS (23)
  - FATIGUE [None]
  - OEDEMA PERIPHERAL [None]
  - RED BLOOD CELL COUNT DECREASED [None]
  - PRURITUS [None]
  - WHITE BLOOD CELL COUNT DECREASED [None]
  - EATING DISORDER [None]
  - HYPERSOMNIA [None]
  - ASCITES [None]
  - BLINDNESS TRANSIENT [None]
  - PERICARDIAL EFFUSION [None]
  - DYSGEUSIA [None]
  - INJECTION SITE ERYTHEMA [None]
  - BLEPHAROSPASM [None]
  - MALAISE [None]
  - CHEST PAIN [None]
  - FLUID RETENTION [None]
  - DYSPNOEA [None]
  - INJECTION SITE PAIN [None]
  - ANAEMIA [None]
  - NEUTROPHIL COUNT DECREASED [None]
  - HYPERTENSION [None]
  - FLUID INTAKE REDUCED [None]
  - AMMONIA INCREASED [None]
